FAERS Safety Report 23755137 (Version 1)
Quarter: 2024Q2

REPORT INFORMATION
  Report Type: Spontaneous
  Country: GB (occurrence: GB)
  Receive Date: 20240418
  Receipt Date: 20240418
  Transmission Date: 20240715
  Serious: Yes (Other)
  Sender: FDA-Public Use
  Company Number: GB-MHRA-TPP26988572C5848431YC1711616543275

PATIENT
  Age: 53 Year
  Sex: Female
  Weight: 108 kg

DRUGS (9)
  1. QUETIAPINE [Suspect]
     Active Substance: QUETIAPINE
     Indication: Ill-defined disorder
     Dosage: UNK
     Route: 065
     Dates: start: 20240322
  2. ATORVASTATIN [Concomitant]
     Active Substance: ATORVASTATIN
     Indication: Ill-defined disorder
     Dosage: 1 DOSAGE FORM, ONCE A DAY  (PLEASE BOOK A BLOOD)
     Route: 065
     Dates: start: 20231228
  3. CITALOPRAM [Concomitant]
     Active Substance: CITALOPRAM\CITALOPRAM HYDROBROMIDE
     Indication: Ill-defined disorder
     Dosage: 1 DOSAGE FORM, ONCE A DAY ( EACH MORNING FOR LOW MOOD)
     Route: 065
     Dates: start: 20230720
  4. DIAZEPAM [Concomitant]
     Active Substance: DIAZEPAM
     Indication: Anxiety
     Dosage: 1 TABLET (2MG) UP TO 3 TIMES DAILY - AVOID REGULAR USE ADDICTIVE PROPERTIES
     Route: 065
     Dates: start: 20240301
  5. FEXOFENADINE [Concomitant]
     Active Substance: FEXOFENADINE HYDROCHLORIDE
     Indication: Ill-defined disorder
     Dosage: 1 DOSAGE FORM, ONCE A DAY ( INCREASE TO 2 TABLE...)
     Route: 065
     Dates: start: 20240326
  6. LANSOPRAZOLE [Concomitant]
     Active Substance: LANSOPRAZOLE
     Indication: Ill-defined disorder
     Dosage: 1 DOSAGE FORM, ONCE A DAY (FOR STOMACH )
     Route: 065
     Dates: start: 20231228
  7. PREDNISOLONE [Concomitant]
     Active Substance: PREDNISOLONE
     Indication: Ill-defined disorder
     Dosage: 4 DOSAGE FORM, DAILY (FOR 7 DAYS)
     Route: 065
     Dates: start: 20240326
  8. PROPRANOLOL [Concomitant]
     Active Substance: PROPRANOLOL HYDROCHLORIDE
     Indication: Ill-defined disorder
     Dosage: 1 DOSAGE FORM, TWO TIMES A DAY ( FOR ANXIETY SYMPTOMS)
     Route: 065
     Dates: start: 20240124
  9. ZOPICLONE [Concomitant]
     Active Substance: ZOPICLONE
     Indication: Ill-defined disorder
     Dosage: 1 DOSAGE FORM, ONCE A DAY (AT NIGHT REGULARLY FOR 5-7 NIGH...)
     Route: 065
     Dates: start: 20240301

REACTIONS (2)
  - Urticaria [Recovering/Resolving]
  - Adverse drug reaction [Recovering/Resolving]

NARRATIVE: CASE EVENT DATE: 20240322
